FAERS Safety Report 8183182-8 (Version None)
Quarter: 2012Q1

REPORT INFORMATION
  Report Type: 
  Country: None (occurrence: None)
  Receive Date: 20120305
  Receipt Date: 20120224
  Transmission Date: 20120608
  Serious: Yes (Hospitalization)
  Sender: FDA-Public Use
  Company Number: JP-BAYER-201015050BYL

PATIENT
  Age: 61 Year
  Sex: Male
  Weight: 70 kg

DRUGS (8)
  1. LOXOPROFEN SODIUM [Concomitant]
     Indication: HEADACHE
     Route: 048
  2. LANSOPRAZOLE [Concomitant]
     Dosage: 15 MG (DAILY DOSE), , ORAL
     Route: 048
  3. SORAFENIB [Suspect]
     Dosage: 400 MG, UNK
     Route: 048
     Dates: start: 20100928
  4. ORADOL [Concomitant]
     Route: 049
  5. UREPEARL [Concomitant]
     Route: 061
  6. PURSENNID [Concomitant]
     Dosage: 24 MG (DAILY DOSE), , ORAL
     Route: 048
  7. LOXOPROFEN SODIUM [Concomitant]
  8. SORAFENIB [Suspect]
     Indication: HEPATIC NEOPLASM MALIGNANT
     Dosage: 400 MG, BID
     Route: 048
     Dates: start: 20100714

REACTIONS (4)
  - HYPERTHYROIDISM [None]
  - ALOPECIA [None]
  - ATRIAL FIBRILLATION [None]
  - RASH [None]
